FAERS Safety Report 21380482 (Version 1)
Quarter: 2022Q3

REPORT INFORMATION
  Report Type: Spontaneous
  Country: CN (occurrence: CN)
  Receive Date: 20220927
  Receipt Date: 20220927
  Transmission Date: 20221027
  Serious: Yes (Other)
  Sender: FDA-Public Use
  Company Number: CN-BAYER-2022A130625

PATIENT
  Age: 68 Year
  Sex: Male
  Weight: 57 kg

DRUGS (3)
  1. STIVARGA [Suspect]
     Active Substance: REGORAFENIB
     Indication: Hepatocellular carcinoma
     Dosage: 80 MG, QD
     Route: 048
     Dates: start: 20220812, end: 20220818
  2. STIVARGA [Suspect]
     Active Substance: REGORAFENIB
     Indication: Hepatic cancer stage IV
  3. SINTILIMAB [Concomitant]
     Active Substance: SINTILIMAB
     Indication: Hepatic cancer stage IV
     Dosage: 200 MG, Q3WK

REACTIONS (6)
  - Asthenia [Unknown]
  - Dysaesthesia [Unknown]
  - Drug-induced liver injury [Unknown]
  - Disorganised speech [None]
  - Hepatic function abnormal [Unknown]
  - Off label use [None]

NARRATIVE: CASE EVENT DATE: 20220812
